FAERS Safety Report 22291703 (Version 1)
Quarter: 2023Q2

REPORT INFORMATION
  Report Type: Spontaneous
  Country: US (occurrence: US)
  Receive Date: 20230507
  Receipt Date: 20230507
  Transmission Date: 20230722
  Serious: Yes (Hospitalization, Other)
  Sender: FDA-Public Use
  Company Number: US-009507513-2305USA001651

PATIENT
  Age: 56 Year
  Sex: Male

DRUGS (1)
  1. CUBICIN [Suspect]
     Active Substance: DAPTOMYCIN
     Indication: Staphylococcal abscess
     Dosage: 6 MILLIGRAM/KILOGRAM, QD
     Route: 042

REACTIONS (1)
  - Eosinophilic pneumonia acute [Recovered/Resolved]
